FAERS Safety Report 10952995 (Version 2)
Quarter: 2015Q1

REPORT INFORMATION
  Report Type: Spontaneous
  Country: DK (occurrence: None)
  Receive Date: 20150323
  Receipt Date: 20150330
  Transmission Date: 20150721
  Serious: No
  Sender: FDA-Public Use
  Company Number: DK-2015-0982

PATIENT
  Age: 44 Year
  Sex: Female
  Weight: 69 kg

DRUGS (12)
  1. EPIRUBICIN [Suspect]
     Active Substance: EPIRUBICIN
     Indication: HER-2 POSITIVE BREAST CANCER
     Dates: start: 2008
  2. FRAGMIN [Concomitant]
     Active Substance: DALTEPARIN SODIUM
  3. PINEX (PARACETAMOL) [Concomitant]
  4. VINORELBINE [Suspect]
     Active Substance: VINORELBINE\VINORELBINE TARTRATE
     Indication: HER-2 POSITIVE BREAST CANCER
     Dates: start: 2011, end: 2013
  5. CYCLOPHOSPHAMIDE (CYCLOPHOSPHAMIDE) [Suspect]
     Active Substance: CYCLOPHOSPHAMIDE
     Indication: HER-2 POSITIVE BREAST CANCER
     Dates: start: 2008
  6. ZOMETA [Concomitant]
     Active Substance: ZOLEDRONIC ACID
  7. PANTOPRAZOLE (PANTOPRAZOLE SODIUM SESQUIHYDRATE) [Concomitant]
  8. LAPATINIB (LAPATINIB) [Concomitant]
     Active Substance: LAPATINIB
     Indication: HER-2 POSITIVE BREAST CANCER
     Dates: end: 201003
  9. CIPRALEX (ESCITALOPRAM OXALATE) [Concomitant]
  10. PREDNISOLONE (PREDNISOLONE ACETATE) [Concomitant]
     Active Substance: PREDNISOLONE ACETATE
  11. HERCEPTIN [Concomitant]
     Active Substance: TRASTUZUMAB
     Indication: HER-2 POSITIVE BREAST CANCER
     Dosage: 600 MG ONCE EVERY 3 WEEKS
     Route: 058
     Dates: start: 2008
  12. ZOPICLONE [Concomitant]
     Active Substance: ZOPICLONE

REACTIONS (5)
  - Metastases to bone [None]
  - Metastases to liver [None]
  - Jaundice [None]
  - Biliary dilatation [None]
  - Liver function test abnormal [None]

NARRATIVE: CASE EVENT DATE: 201106
